FAERS Safety Report 8848326 (Version 2)
Quarter: 2012Q4

REPORT INFORMATION
  Report Type: 
  Country: US (occurrence: US)
  Receive Date: 20121019
  Receipt Date: 20121029
  Transmission Date: 20130627
  Serious: Yes (Hospitalization, Other)
  Sender: FDA-Public Use
  Company Number: US-AMGEN-USASP2012065835

PATIENT
  Age: 80 Year
  Sex: Female

DRUGS (11)
  1. PROLIA [Suspect]
     Indication: OSTEOPOROSIS POSTMENOPAUSAL
     Dosage: UNK UNK, q6mo
  2. CALCIUM [Concomitant]
     Dosage: UNK UNK, qd
  3. VITAMIN D /00107901/ [Concomitant]
  4. PRAVASTATIN [Concomitant]
     Dosage: 20 mg, qd
  5. PLAQUENIL                          /00072602/ [Concomitant]
     Dosage: 200 mg, qd
  6. METOPROLOL [Concomitant]
     Dosage: 100 DF, bid
  7. SOMA [Concomitant]
     Dosage: 350 mg, qhs
  8. CLONAZEPAM [Concomitant]
     Dosage: 1 mg, qhs
  9. HYDRALAZINE [Concomitant]
     Dosage: 25 DF, bid
  10. ASPIRIN [Concomitant]
     Dosage: 162 DF, qd
  11. KCL [Concomitant]
     Dosage: 20 mEq, UNK

REACTIONS (12)
  - Cerebrovascular accident [Recovered/Resolved]
  - Aspiration [Recovered/Resolved]
  - Hypocalcaemia [Not Recovered/Not Resolved]
  - Pain [Unknown]
  - Asthenia [Unknown]
  - Paraesthesia [Unknown]
  - Muscle spasms [Unknown]
  - Muscle twitching [Unknown]
  - Nausea [Unknown]
  - Vomiting [Unknown]
  - Ecchymosis [Unknown]
  - Oedema peripheral [Unknown]
